FAERS Safety Report 5070516-6 (Version None)
Quarter: 2006Q3

REPORT INFORMATION
  Report Type: 
  Country: None (occurrence: None)
  Receive Date: 20060804
  Receipt Date: 20060607
  Transmission Date: 20061208
  Serious: Yes (Hospitalization)
  Sender: FDA-Public Use
  Company Number: JP-SP-2006-01399

PATIENT
  Age: 67 Year
  Sex: Male

DRUGS (4)
  1. IMMUCYST [Suspect]
     Indication: BLADDER CANCER
     Route: 043
     Dates: start: 20060426, end: 20060531
  2. MECOBALAMIN [Concomitant]
     Dates: start: 20060426
  3. NEUROTROPIN [Concomitant]
     Dates: start: 20060426
  4. LIMAPROST ALFADEX [Concomitant]
     Dates: start: 20060426

REACTIONS (8)
  - ARTHRALGIA [None]
  - BOVINE TUBERCULOSIS [None]
  - GAIT DISTURBANCE [None]
  - HYPOAESTHESIA [None]
  - OEDEMA PERIPHERAL [None]
  - POLYARTHRITIS [None]
  - PYREXIA [None]
  - SWELLING [None]
